FAERS Safety Report 7254976-8 (Version None)
Quarter: 2011Q1

REPORT INFORMATION
  Report Type: 
  Country: None (occurrence: None)
  Receive Date: 20110129
  Receipt Date: 20100224
  Transmission Date: 20110831
  Serious: No
  Sender: FDA-Public Use
  Company Number: US-ABBOTT-10P-163-0625017-00

PATIENT
  Sex: Female
  Weight: 63.56 kg

DRUGS (18)
  1. NORCO [Concomitant]
     Indication: PAIN
     Dosage: 10/325
  2. METHOTREXATE [Concomitant]
     Indication: PRODUCT USED FOR UNKNOWN INDICATION
  3. SYNTHROID [Concomitant]
     Indication: PRODUCT USED FOR UNKNOWN INDICATION
  4. CYMBALTA [Concomitant]
     Indication: PAIN
  5. HUMIRA [Suspect]
     Route: 058
     Dates: start: 20091101
  6. CATAWICK [Concomitant]
     Indication: BLOOD CHOLESTEROL
  7. ESTRASE [Concomitant]
     Indication: PRODUCT USED FOR UNKNOWN INDICATION
  8. TOPROL-XL [Concomitant]
     Indication: BLOOD PRESSURE
  9. CATAWICK [Concomitant]
     Indication: BLOOD PRESSURE
     Dosage: 10/20 MG
  10. BUSPAR [Concomitant]
     Indication: DEPRESSION
     Dosage: BID
  11. HUMIRA [Suspect]
     Indication: PSORIATIC ARTHROPATHY
     Route: 058
     Dates: start: 20090901, end: 20091101
  12. CHANTIX [Concomitant]
     Indication: EX-TOBACCO USER
  13. AMBIEN [Concomitant]
     Indication: PRODUCT USED FOR UNKNOWN INDICATION
     Dosage: PRN
  14. FLEXERIL [Concomitant]
     Indication: PRODUCT USED FOR UNKNOWN INDICATION
  15. HUMIRA [Suspect]
     Indication: PSORIASIS
     Route: 058
     Dates: start: 20090501, end: 20090901
  16. ETODOLAC [Concomitant]
     Indication: PRODUCT USED FOR UNKNOWN INDICATION
  17. FOLIC ACID [Concomitant]
     Indication: PRODUCT USED FOR UNKNOWN INDICATION
     Dosage: BID 6 ON DAY BEFORE METHOREXATE
  18. CYMBALTA [Concomitant]
     Indication: DEPRESSION

REACTIONS (3)
  - OROPHARYNGEAL PAIN [None]
  - INJECTION SITE PAIN [None]
  - DRUG EFFECT DECREASED [None]
